FAERS Safety Report 18450575 (Version 1)
Quarter: 2020Q4

REPORT INFORMATION
  Report Type: Spontaneous
  Country: GB (occurrence: GB)
  Receive Date: 20201102
  Receipt Date: 20201102
  Transmission Date: 20210114
  Serious: Yes (Life-Threatening, Other)
  Sender: FDA-Public Use
  Company Number: GB-CIPLA LTD.-2020GB07707

PATIENT

DRUGS (18)
  1. CETIRIZINE [Suspect]
     Active Substance: CETIRIZINE HYDROCHLORIDE
     Indication: CHEMOTHERAPY SIDE EFFECT PROPHYLAXIS
     Dosage: 10 MILLIGRAM, CYCLE 1, 2, 3 + 4
     Route: 048
  2. FEXOFENADINE [Suspect]
     Active Substance: FEXOFENADINE HYDROCHLORIDE
     Indication: ALLERGY PROPHYLAXIS
     Dosage: UNK
     Route: 065
  3. ONDANSETRON [Concomitant]
     Active Substance: ONDANSETRON
     Indication: CHEMOTHERAPY SIDE EFFECT PROPHYLAXIS
     Dosage: 8 MG, CYCLE 1, 2, 3 + 4 (30 MIN BEFORE)
     Route: 042
  4. CETIRIZINE [Suspect]
     Active Substance: CETIRIZINE HYDROCHLORIDE
     Indication: ALLERGY PROPHYLAXIS
     Dosage: UNK
     Route: 065
  5. PACLITAXEL. [Suspect]
     Active Substance: PACLITAXEL
     Dosage: 378 MG, (175 MG/M2) VIA 3-HOUR INFUSION, CYCLE 4-DAY 2
     Route: 042
  6. KETOTIFEN [Suspect]
     Active Substance: KETOTIFEN
     Indication: ALLERGY PROPHYLAXIS
     Dosage: UNK
     Route: 065
  7. CHLORPHENIRAMINE HYDROCHLORIDE. [Concomitant]
     Active Substance: CHLORPHENIRAMINE HYDROCHLORIDE
     Indication: ANTIALLERGIC THERAPY
     Dosage: 10 MG, CYCLE 1, 2, 3, 4 (30 MIN BEFORE)
     Route: 042
  8. MONTELUKAST [Suspect]
     Active Substance: MONTELUKAST SODIUM
     Indication: ALLERGY PROPHYLAXIS
     Dosage: UNK
     Route: 065
  9. RANITIDINE. [Concomitant]
     Active Substance: RANITIDINE
     Dosage: 50 MG, CYCLE 1, 2, 3 + 4 (30 MIN BEFORE)
     Route: 042
  10. CARBOPLATIN. [Suspect]
     Active Substance: CARBOPLATIN
     Dosage: 560 MG, VIA 1 HR INFUSION,CYCLE 3, 4, DAY1
     Route: 042
  11. PACLITAXEL. [Suspect]
     Active Substance: PACLITAXEL
     Indication: ENDOMETRIAL CANCER STAGE III
     Dosage: 378 MG (175 MG/M2), VIA 6-HOUR INFUSION, CYCLE 2, 3-DAY 2
     Route: 042
  12. CARBOPLATIN. [Suspect]
     Active Substance: CARBOPLATIN
     Indication: ENDOMETRIAL CANCER STAGE III
     Dosage: 560 MG, CYCLE1 AND 2, DAY 1
     Route: 042
  13. SODIUM CROMOGLICATE [Suspect]
     Active Substance: CROMOLYN SODIUM
     Indication: ALLERGY PROPHYLAXIS
     Dosage: UNK
     Route: 065
  14. RANITIDINE. [Concomitant]
     Active Substance: RANITIDINE
     Indication: CHEMOTHERAPY SIDE EFFECT PROPHYLAXIS
     Dosage: 150 MG, CYCLE 1, 2, 3 + 4 (12 HRS BEFORE)
     Route: 048
  15. DEXAMETHASONE. [Concomitant]
     Active Substance: DEXAMETHASONE
     Indication: CHEMOTHERAPY SIDE EFFECT PROPHYLAXIS
     Dosage: 8 MG, 12 HOURS BEFORE, CYCLE 1, 2 (DAY 1), CYCLE 3 (DAY 1)
     Route: 048
  16. DEXAMETHASONE. [Concomitant]
     Active Substance: DEXAMETHASONE
     Dosage: 8 MG, 30 MINUTES BEFORE, CYCLE 1, 2 (DAY 1), CYCLE 3 (DAY 1)
     Route: 042
  17. DEXAMETHASONE. [Concomitant]
     Active Substance: DEXAMETHASONE
     Dosage: 20 MG, 30 MIN BEFORE, CYCLE 2 (DAY 2), CYCLE 3 (DAY 2), CYCLE 4 (DAY 1 + 2)
     Route: 042
  18. DEXAMETHASONE. [Concomitant]
     Active Substance: DEXAMETHASONE
     Dosage: 20 MG, 12 HOURS BEFORE, CYCLE 4 (DAY 1)
     Route: 048

REACTIONS (5)
  - Flushing [Recovered/Resolved]
  - Anaphylactic reaction [Unknown]
  - Hypersensitivity [Recovered/Resolved]
  - Drug ineffective [Unknown]
  - Back pain [Recovered/Resolved]
